FAERS Safety Report 12982202 (Version 1)
Quarter: 2016Q4

REPORT INFORMATION
  Report Type: Spontaneous
  Country: LB (occurrence: LB)
  Receive Date: 20161129
  Receipt Date: 20161129
  Transmission Date: 20170207
  Serious: Yes (Other)
  Sender: FDA-Public Use
  Company Number: PHHY2016LB162221

PATIENT
  Age: 60 Year
  Sex: Female

DRUGS (1)
  1. FEMARA [Suspect]
     Active Substance: LETROZOLE
     Indication: OVARIAN GRANULOSA CELL TUMOUR
     Route: 065

REACTIONS (2)
  - Neoplasm recurrence [Recovering/Resolving]
  - Product use issue [Unknown]
